FAERS Safety Report 17681171 (Version 2)
Quarter: 2020Q2

REPORT INFORMATION
  Report Type: Report from Study
  Country: IN (occurrence: IN)
  Receive Date: 20200417
  Receipt Date: 20200423
  Transmission Date: 20200714
  Serious: No
  Sender: FDA-Public Use
  Company Number: NVSC2020IN097545

PATIENT
  Age: 58 Year
  Sex: Male
  Weight: 69 kg

DRUGS (2)
  1. GALVUS MET [Suspect]
     Active Substance: METFORMIN HYDROCHLORIDE\VILDAGLIPTIN
     Indication: DIABETES MELLITUS
     Dosage: 50/500 UNITS NOT REPORTED, BID (1-0-1) (SINCE 8 YEARS)
     Route: 048
  2. GLUCONORM G [Concomitant]
     Active Substance: GLIMEPIRIDE\METFORMIN
     Indication: DIABETES MELLITUS
     Dosage: UNK (1-0-1)
     Route: 048

REACTIONS (5)
  - Blood glucose abnormal [Unknown]
  - Hyperglycaemia [Unknown]
  - Laziness [Unknown]
  - Glycosylated haemoglobin increased [Unknown]
  - Hypertension [Unknown]

NARRATIVE: CASE EVENT DATE: 20200414
